FAERS Safety Report 7336342-X (Version None)
Quarter: 2011Q1

REPORT INFORMATION
  Report Type: 
  Country: None (occurrence: None)
  Receive Date: 20110307
  Receipt Date: 20110302
  Transmission Date: 20110831
  Serious: Yes (Other)
  Sender: FDA-Public Use
  Company Number: US-ALLERGAN-1102321US

PATIENT
  Sex: Female

DRUGS (1)
  1. BOTOX COSMETIC [Suspect]
     Indication: SKIN WRINKLING
     Dosage: 20 UNITS, SINGLE
     Route: 030
     Dates: start: 20090101, end: 20090101

REACTIONS (5)
  - MUSCLE TIGHTNESS [None]
  - FLUID RETENTION [None]
  - LYMPHATIC DISORDER [None]
  - BOTULISM [None]
  - SECRETION DISCHARGE [None]
